FAERS Safety Report 6031822-1 (Version None)
Quarter: 2008Q4

REPORT INFORMATION
  Report Type: 
  Country: None (occurrence: None)
  Receive Date: 20081224
  Receipt Date: 20080826
  Transmission Date: 20090506
  Serious: No
  Sender: FDA-Public Use
  Company Number: 2008PV036585

PATIENT
  Age: 63 Year
  Sex: Female

DRUGS (4)
  1. SYMLIN [Suspect]
     Indication: TYPE 1 DIABETES MELLITUS
     Dosage: 120 MCG; ; SC, 60 MCG; ; SC
     Route: 058
     Dates: start: 20080407, end: 20080421
  2. SYMLIN [Suspect]
     Indication: TYPE 1 DIABETES MELLITUS
     Dosage: 120 MCG; ; SC, 60 MCG; ; SC
     Route: 058
     Dates: start: 20080422
  3. APIDRA [Concomitant]
  4. INSULIN DETEMIR [Concomitant]

REACTIONS (6)
  - ARTHRALGIA [None]
  - BLOOD GLUCOSE INCREASED [None]
  - COUGH [None]
  - EARLY SATIETY [None]
  - HYPERHIDROSIS [None]
  - PALPITATIONS [None]
